FAERS Safety Report 5837553-2 (Version None)
Quarter: 2008Q3

REPORT INFORMATION
  Report Type: 
  Country: None (occurrence: None)
  Receive Date: 20080807
  Receipt Date: 20080726
  Transmission Date: 20090109
  Serious: Yes (Other)
  Sender: FDA-Public Use
  Company Number: US-PFIZER INC-2008063780

PATIENT
  Sex: Female
  Weight: 102.1 kg

DRUGS (9)
  1. CHANTIX [Suspect]
     Indication: SMOKING CESSATION THERAPY
  2. LEXAPRO [Concomitant]
  3. WELLBUTRIN [Concomitant]
  4. AMLODIPINE BESYLATE/VALSARTAN [Concomitant]
  5. OMEPRAZOLE [Concomitant]
  6. CLORAZEPATE DIPOTASSIUM [Concomitant]
  7. ALL OTHER THERAPEUTIC PRODUCTS [Concomitant]
  8. LUNESTA [Concomitant]
  9. AMBIEN [Concomitant]

REACTIONS (1)
  - WEIGHT DECREASED [None]
